FAERS Safety Report 15901649 (Version 2)
Quarter: 2019Q4

REPORT INFORMATION
  Report Type: Report from Study
  Country: US (occurrence: US)
  Receive Date: 20190201
  Receipt Date: 20191007
  Transmission Date: 20200122
  Serious: Yes (Hospitalization)
  Sender: FDA-Public Use
  Company Number: US-ACTELION-A-NJ2018-171628

PATIENT
  Age: 86 Year
  Sex: Female
  Weight: 72.56 kg

DRUGS (4)
  1. SILDENAFIL CITRATE. [Concomitant]
     Active Substance: SILDENAFIL CITRATE
  2. OPSUMIT [Suspect]
     Active Substance: MACITENTAN
     Indication: PULMONARY ARTERIAL HYPERTENSION
     Dosage: 10 MG, QD
     Route: 048
  3. CLINDAMYCIN. [Suspect]
     Active Substance: CLINDAMYCIN
     Indication: LOCALISED INFECTION
     Route: 065
  4. TADALAFIL. [Suspect]
     Active Substance: TADALAFIL
     Indication: PRODUCT USED FOR UNKNOWN INDICATION
     Dosage: UNK
     Route: 065
     Dates: start: 20180906

REACTIONS (16)
  - Dyspnoea [Unknown]
  - Renal mass [Unknown]
  - Respiration abnormal [Unknown]
  - Localised infection [Unknown]
  - Restlessness [Not Recovered/Not Resolved]
  - Palpitations [Unknown]
  - Renal surgery [Unknown]
  - Influenza [Unknown]
  - Product dose omission [Unknown]
  - Anaemia [Unknown]
  - Multiple allergies [Unknown]
  - Back pain [Unknown]
  - Cough [Unknown]
  - Vision blurred [Unknown]
  - Nasopharyngitis [Unknown]
  - Headache [Unknown]

NARRATIVE: CASE EVENT DATE: 20180906
